FAERS Safety Report 9857140 (Version 1)
Quarter: 2014Q1

REPORT INFORMATION
  Report Type: Report from Study
  Country: US (occurrence: US)
  Receive Date: 20140130
  Receipt Date: 20140130
  Transmission Date: 20141002
  Serious: Yes (Life-Threatening, Hospitalization)
  Sender: FDA-Public Use
  Company Number: US-ALEXION PHARMACEUTICALS INC.-A201400305

PATIENT
  Sex: 0

DRUGS (2)
  1. SOLIRIS [Suspect]
     Indication: LYMPHOMA
     Dosage: 1200 MG, UNK
     Route: 042
     Dates: start: 20140117
  2. SOLIRIS [Suspect]
     Indication: OFF LABEL USE

REACTIONS (2)
  - Hospice care [Not Recovered/Not Resolved]
  - Off label use [Not Recovered/Not Resolved]
